FAERS Safety Report 7852111-6 (Version None)
Quarter: 2011Q4

REPORT INFORMATION
  Report Type: 
  Country: None (occurrence: None)
  Receive Date: 20111026
  Receipt Date: 20111024
  Transmission Date: 20120403
  Serious: Yes (Other)
  Sender: FDA-Public Use
  Company Number: US-PFIZER INC-2011256160

PATIENT
  Sex: Female
  Weight: 53.968 kg

DRUGS (1)
  1. CHANTIX [Suspect]
     Indication: SMOKING CESSATION THERAPY
     Dosage: 0.5 MG, 1X/DAY
     Route: 048
     Dates: start: 20111019, end: 20111021

REACTIONS (7)
  - NERVOUSNESS [None]
  - CONFUSIONAL STATE [None]
  - FEELING JITTERY [None]
  - BRADYPHRENIA [None]
  - PAIN [None]
  - LYME DISEASE [None]
  - FEELING ABNORMAL [None]
